FAERS Safety Report 9968462 (Version 1)
Quarter: 2014Q1

REPORT INFORMATION
  Report Type: Report from Study
  Country: US (occurrence: US)
  Receive Date: 20140306
  Receipt Date: 20140306
  Transmission Date: 20141002
  Serious: No
  Sender: FDA-Public Use
  Company Number: US-ABBVIE-13P-163-1140624-00

PATIENT
  Age: 52 Year
  Sex: Female

DRUGS (15)
  1. HUMIRA [Suspect]
     Indication: HIDRADENITIS
     Dates: start: 20130828
  2. LORATADINE [Concomitant]
     Indication: SINUS DISORDER
  3. MULTIVITAMIN [Concomitant]
     Indication: PRODUCT USED FOR UNKNOWN INDICATION
  4. PRO AIR INHALER [Concomitant]
     Indication: ASTHMA
     Route: 055
  5. ADVAIR [Concomitant]
     Indication: ASTHMA
     Route: 055
  6. NEXIUM [Concomitant]
     Indication: GASTRIC DISORDER
  7. MYRBETRIQ [Concomitant]
     Indication: BLADDER DISORDER
  8. LEXAPRO [Concomitant]
     Indication: DEPRESSION
  9. LIPITOR [Concomitant]
     Indication: BLOOD CHOLESTEROL INCREASED
  10. TRIAMTERENE HTZ [Concomitant]
     Indication: HYPERTENSION
     Dosage: 37.5/25 MG DAILY
  11. VENLAFAXINE [Concomitant]
     Indication: DEPRESSION
  12. LITHIUM [Concomitant]
     Indication: MOOD SWINGS
  13. VITAMIN D3 [Concomitant]
     Indication: PRODUCT USED FOR UNKNOWN INDICATION
  14. ASPIRIN [Concomitant]
     Indication: PRODUCT USED FOR UNKNOWN INDICATION
  15. PERCOCET [Concomitant]
     Indication: PRODUCT USED FOR UNKNOWN INDICATION

REACTIONS (1)
  - Pain [Not Recovered/Not Resolved]
